FAERS Safety Report 25530040 (Version 1)
Quarter: 2025Q3

REPORT INFORMATION
  Report Type: Spontaneous
  Country: GB (occurrence: GB)
  Receive Date: 20250708
  Receipt Date: 20250708
  Transmission Date: 20251021
  Serious: Yes (Other)
  Sender: ELI LILLY AND COMPANY
  Company Number: None

PATIENT
  Sex: Male

DRUGS (2)
  1. MOUNJARO [Suspect]
     Active Substance: TIRZEPATIDE
     Indication: Weight control
     Dosage: 2.5 MG, WEEKLY (1/W)
     Route: 065
     Dates: start: 2025, end: 202506
  2. CANDESARTAN [Concomitant]
     Active Substance: CANDESARTAN
     Indication: Aortic aneurysm
     Dates: start: 2015

REACTIONS (5)
  - Heart rate decreased [Recovered/Resolved]
  - Blood pressure increased [Recovering/Resolving]
  - Discomfort [Unknown]
  - Feeling abnormal [Unknown]
  - Fatigue [Recovered/Resolved]

NARRATIVE: CASE EVENT DATE: 20250501
